FAERS Safety Report 5664125-5 (Version None)
Quarter: 2008Q1

REPORT INFORMATION
  Report Type: 
  Country: None (occurrence: None)
  Receive Date: 20080312
  Receipt Date: 20080307
  Transmission Date: 20080703
  Serious: Yes (Hospitalization)
  Sender: FDA-Public Use
  Company Number: 2007BI022904

PATIENT
  Age: 46 Year
  Sex: Male

DRUGS (11)
  1. TYSABRI [Suspect]
     Indication: MULTIPLE SCLEROSIS
     Dosage: 300 MG; QM ;IV
     Route: 042
     Dates: start: 20070822
  2. BACLOFEN [Concomitant]
  3. TOPROL [Concomitant]
  4. PLAVIX [Concomitant]
  5. PREVACID [Concomitant]
  6. LISINOPRIL [Concomitant]
  7. OXYCODONE HCL [Concomitant]
  8. ZOCOR [Concomitant]
  9. LASIX [Concomitant]
  10. CHANTIX [Concomitant]
  11. DARVOCET [Concomitant]

REACTIONS (22)
  - AGITATION [None]
  - ANAEMIA [None]
  - ANXIETY [None]
  - ATELECTASIS [None]
  - ATRIAL FIBRILLATION [None]
  - CORONARY ARTERY DISEASE [None]
  - DELIRIUM [None]
  - DEPRESSION [None]
  - ELECTROCARDIOGRAM QT PROLONGED [None]
  - HYPOTENSION [None]
  - KLEBSIELLA INFECTION [None]
  - MALAISE [None]
  - MEDIASTINITIS [None]
  - PANIC DISORDER [None]
  - PLEURAL EFFUSION [None]
  - PNEUMONIA [None]
  - RENAL FAILURE ACUTE [None]
  - RENAL TUBULAR NECROSIS [None]
  - RESPIRATORY DISTRESS [None]
  - SEPSIS SYNDROME [None]
  - STAPHYLOCOCCAL INFECTION [None]
  - TOXIC ENCEPHALOPATHY [None]
